FAERS Safety Report 7356483-0 (Version None)
Quarter: 2011Q1

REPORT INFORMATION
  Report Type: 
  Country: None (occurrence: None)
  Receive Date: 20110316
  Receipt Date: 20110301
  Transmission Date: 20110831
  Serious: Yes (Other)
  Sender: FDA-Public Use
  Company Number: PHHY2010MX43381

PATIENT
  Sex: Female

DRUGS (1)
  1. ACLASTA [Suspect]
     Indication: OSTEOPOROSIS
     Dosage: 1 INJECTION (5 MG/100ML) PER YEAR
     Route: 042
     Dates: start: 20090101

REACTIONS (5)
  - DIARRHOEA [None]
  - FEELING ABNORMAL [None]
  - DEAFNESS [None]
  - STOMATITIS [None]
  - CALCIUM METABOLISM DISORDER [None]
